FAERS Safety Report 9329646 (Version 1)
Quarter: 2013Q2

REPORT INFORMATION
  Report Type: Spontaneous
  Country: US (occurrence: US)
  Receive Date: 20130604
  Receipt Date: 20130604
  Transmission Date: 20140414
  Serious: No
  Sender: FDA-Public Use
  Company Number: US-SANOFI-AVENTIS-2012SA089314

PATIENT
  Age: 67 Year
  Sex: Female

DRUGS (1)
  1. LANTUS [Suspect]
     Indication: TYPE 1 DIABETES MELLITUS
     Dosage: 11-15 UNITS,DAILY DOSE:11 UNIT(S)
     Route: 058
     Dates: start: 2003

REACTIONS (2)
  - Dermatitis [Unknown]
  - Blood glucose decreased [Recovered/Resolved]
